FAERS Safety Report 15730883 (Version 1)
Quarter: 2018Q4

REPORT INFORMATION
  Report Type: Spontaneous
  Country: US (occurrence: US)
  Receive Date: 20181202
  Receipt Date: 20181202
  Transmission Date: 20190205
  Serious: Yes (Other)
  Sender: FDA-Public Use
  Company Number: None

PATIENT
  Age: 42 Year
  Sex: Female
  Weight: 53.07 kg

DRUGS (10)
  1. ADDERALL [Concomitant]
     Active Substance: AMPHETAMINE ASPARTATE\AMPHETAMINE SULFATE\DEXTROAMPHETAMINE SACCHARATE\DEXTROAMPHETAMINE SULFATE
  2. CQ 10 [Concomitant]
  3. ESCITALOPRAM [Suspect]
     Active Substance: ESCITALOPRAM OXALATE
  4. MULTI VIT [Concomitant]
  5. VITAMIN D [Concomitant]
     Active Substance: CHOLECALCIFEROL
  6. VYVANSE [Concomitant]
     Active Substance: LISDEXAMFETAMINE DIMESYLATE
  7. VIT B [Concomitant]
     Active Substance: VITAMIN B
  8. FISH OIL [Concomitant]
     Active Substance: FISH OIL
  9. HYDROXILINE [Concomitant]
  10. STRONTIUM [Concomitant]
     Active Substance: STRONTIUM

REACTIONS (3)
  - Diarrhoea [None]
  - Anxiety disorder [None]
  - Migraine [None]

NARRATIVE: CASE EVENT DATE: 20181130
